FAERS Safety Report 9524479 (Version 3)
Quarter: 2013Q4

REPORT INFORMATION
  Report Type: Spontaneous
  Country: US (occurrence: US)
  Receive Date: 20130916
  Receipt Date: 20131112
  Transmission Date: 20140711
  Serious: Yes (Other)
  Sender: FDA-Public Use
  Company Number: US-PFIZER INC-2013262639

PATIENT
  Sex: Female

DRUGS (1)
  1. ARTHROTEC [Suspect]
     Dosage: UNK

REACTIONS (5)
  - Arthropathy [Unknown]
  - Arthropathy [Unknown]
  - Vulvovaginal discomfort [Unknown]
  - Arthropathy [Unknown]
  - Arthritis [Unknown]
